FAERS Safety Report 13255955 (Version 1)
Quarter: 2017Q1

REPORT INFORMATION
  Report Type: Spontaneous
  Country: US (occurrence: US)
  Receive Date: 20170221
  Receipt Date: 20170221
  Transmission Date: 20170428
  Serious: Yes (Other)
  Sender: FDA-Public Use
  Company Number: US-SA-2017SA027621

PATIENT
  Age: 43 Year
  Sex: Male
  Weight: 143.1 kg

DRUGS (1)
  1. GOLD BOND ULTIMATE SOOTHING SKIN THERAPY [Suspect]
     Active Substance: COSMETICS
     Indication: DRY SKIN
     Route: 061
     Dates: start: 20170118, end: 20170118

REACTIONS (5)
  - Blister [Not Recovered/Not Resolved]
  - Erythema [None]
  - Dermatitis contact [Not Recovered/Not Resolved]
  - Rash [Not Recovered/Not Resolved]
  - Pruritus [Not Recovered/Not Resolved]

NARRATIVE: CASE EVENT DATE: 20170118
